FAERS Safety Report 6824615-6 (Version None)
Quarter: 2010Q3

REPORT INFORMATION
  Report Type: 
  Country: None (occurrence: None)
  Receive Date: 20100708
  Receipt Date: 20061107
  Transmission Date: 20110219
  Serious: No
  Sender: FDA-Public Use
  Company Number: US-PFIZER INC-2006139890

PATIENT
  Sex: Female
  Weight: 53.98 kg

DRUGS (10)
  1. CHANTIX [Suspect]
     Indication: EX-TOBACCO USER
     Dates: start: 20061031
  2. BACLOFEN [Concomitant]
  3. NEURONTIN [Concomitant]
  4. ATENOLOL [Concomitant]
  5. LIPITOR [Concomitant]
  6. PLAVIX [Concomitant]
  7. LASIX [Concomitant]
  8. NEXIUM [Concomitant]
  9. ZETIA [Concomitant]
  10. ASPIRIN [Concomitant]

REACTIONS (2)
  - HEADACHE [None]
  - NAUSEA [None]
